FAERS Safety Report 7811483-9 (Version None)
Quarter: 2011Q4

REPORT INFORMATION
  Report Type: 
  Country: None (occurrence: None)
  Receive Date: 20111013
  Receipt Date: 20111013
  Transmission Date: 20120403
  Serious: Yes (Other)
  Sender: FDA-Public Use
  Company Number: None

PATIENT
  Sex: Male
  Weight: 20.7 kg

DRUGS (11)
  1. METHOTREXATE [Concomitant]
  2. FENTANYL [Concomitant]
  3. NYSTATIN [Concomitant]
  4. GABAPENTIN [Concomitant]
  5. POLYETHYLENE GLYCOL [Concomitant]
  6. PROPOFOL [Concomitant]
  7. HEPARIN [Concomitant]
  8. VINCRISTINE [Concomitant]
  9. ENOXAPARIN [Concomitant]
  10. PANTOPRAZOLE [Concomitant]
  11. ONCASPAR [Suspect]

REACTIONS (1)
  - DRUG HYPERSENSITIVITY [None]
